FAERS Safety Report 17731771 (Version 1)
Quarter: 2020Q2

REPORT INFORMATION
  Report Type: Spontaneous
  Country: FR (occurrence: FR)
  Receive Date: 20200501
  Receipt Date: 20200501
  Transmission Date: 20200714
  Serious: Yes (Disabling)
  Sender: FDA-Public Use
  Company Number: FR-ROCHE-2593180

PATIENT
  Age: 77 Year
  Sex: Female

DRUGS (8)
  1. LUCENTIS [Suspect]
     Active Substance: RANIBIZUMAB
     Dosage: UNK
     Route: 042
     Dates: start: 20200323
  2. KARDEGIC [Concomitant]
     Active Substance: ASPIRIN DL-LYSINE
  3. ARESTAL [Concomitant]
     Active Substance: LOPERAMIDE OXIDE
  4. INSULIN [Concomitant]
     Active Substance: INSULIN NOS
  5. AMLOR [Concomitant]
     Active Substance: AMLODIPINE BESYLATE
  6. LUCENTIS [Suspect]
     Active Substance: RANIBIZUMAB
     Indication: MACULAR OEDEMA
     Dosage: UNK
     Route: 042
     Dates: start: 20200217
  7. PLAVIX [Concomitant]
     Active Substance: CLOPIDOGREL BISULFATE
  8. TRINITRINE [Concomitant]
     Active Substance: NITROGLYCERIN

REACTIONS (1)
  - Corneal oedema [Unknown]

NARRATIVE: CASE EVENT DATE: 20200414
